FAERS Safety Report 18054901 (Version 1)
Quarter: 2020Q3

REPORT INFORMATION
  Report Type: Spontaneous
  Country: GB (occurrence: GB)
  Receive Date: 20200722
  Receipt Date: 20200722
  Transmission Date: 20201103
  Serious: Yes (Life-Threatening, Hospitalization, Other)
  Sender: FDA-Public Use
  Company Number: GB-MYLANLABS-2020M1064995

PATIENT
  Age: 34 Year
  Sex: Female
  Weight: 70 kg

DRUGS (10)
  1. PARACETAMOL [Concomitant]
     Active Substance: ACETAMINOPHEN
     Indication: PAIN
     Dosage: 1 G, 4X/DAY PRN
     Dates: start: 20200507
  2. GELCLAIR                           /01702001/ [Concomitant]
     Indication: MUCOSAL INFLAMMATION
     Dosage: UNK, PRN
     Dates: start: 20200507
  3. TINZAPARIN [Concomitant]
     Active Substance: TINZAPARIN
     Indication: DEEP VEIN THROMBOSIS
     Dosage: UNK UNK, QD (12000 UNITS, DAILY)
     Dates: start: 20200208
  4. SODIUM CHLORIDE. [Suspect]
     Active Substance: SODIUM CHLORIDE
     Indication: PRODUCT USED FOR UNKNOWN INDICATION
     Dosage: UNK
  5. CITALOPRAM [Concomitant]
     Active Substance: CITALOPRAM HYDROBROMIDE
     Indication: DEPRESSION
     Dosage: 20 MG, DAILY
     Dates: start: 20200410
  6. DIFFLAM [Concomitant]
     Active Substance: BENZYDAMINE HYDROCHLORIDE
     Indication: MUCOSAL INFLAMMATION
     Dosage: UNK, PRN
     Dates: start: 20200507
  7. MORPHINE [Concomitant]
     Active Substance: MORPHINE
     Indication: PAIN
     Dosage: 10 MG, AS NEEDED
     Dates: start: 20200507
  8. OXETACAINE [Concomitant]
     Active Substance: OXETHAZAINE
     Indication: MUCOSAL INFLAMMATION
     Dosage: UNK, PRN
     Dates: start: 20200507
  9. METHOTREXATE. [Suspect]
     Active Substance: METHOTREXATE
     Indication: PRODUCT USED FOR UNKNOWN INDICATION
     Dosage: 23900 MG IN 1000 ML NACL
  10. METHOTREXATE. [Suspect]
     Active Substance: METHOTREXATE
     Dosage: 21500 MG, EVERY 5 WEEKS, 4 HOUR INFUSION; TOTAL CHEMO CYCLE LENGTH = 4 DAYS
     Dates: start: 20200504

REACTIONS (5)
  - Visual impairment [Unknown]
  - Intraocular pressure increased [Unknown]
  - Intracranial pressure increased [Unknown]
  - Leukoencephalopathy [Recovering/Resolving]
  - Headache [Unknown]

NARRATIVE: CASE EVENT DATE: 20200507
